FAERS Safety Report 10224510 (Version 2)
Quarter: 2014Q2

REPORT INFORMATION
  Report Type: Report from Study
  Country: US (occurrence: None)
  Receive Date: 20140605
  Receipt Date: 20140618
  Transmission Date: 20141212
  Serious: Yes (Hospitalization)
  Sender: FDA-Public Use
  Company Number: KAD201406-000593

PATIENT
  Age: 64 Year
  Sex: Female

DRUGS (9)
  1. RIBAVIRIN [Suspect]
     Indication: CHRONIC HEPATITIS C
     Route: 048
     Dates: start: 20130628
  2. PEGINTERFERON ALFA-2A [Suspect]
     Indication: CHRONIC HEPATITIS C
     Route: 058
     Dates: start: 20130628
  3. BMS 914143 [Suspect]
     Indication: CHRONIC HEPATITIS C
     Route: 058
     Dates: start: 20130628
  4. TELAPREVIR [Suspect]
     Indication: CHRONIC HEPATITIS C
     Route: 048
     Dates: start: 20130628, end: 20130913
  5. LEVOTHYROXINE (LEVOTHYROXINE  SODIUM) [Concomitant]
  6. IRON SUPPLEMENT (IRON PREPARATION) [Concomitant]
  7. FERROUS GLUCONATE (FERROUS GLUCONATE) [Concomitant]
  8. REGLAN (METOCLOPRAMIDE HCL) [Concomitant]
  9. SYNTHROID (LEVOTHYROXINE SODIUM) [Concomitant]

REACTIONS (19)
  - White blood cells urine positive [None]
  - Protein urine present [None]
  - Red blood cells urine positive [None]
  - Urine abnormality [None]
  - Bacterial test positive [None]
  - Laboratory test interference [None]
  - Urinary tract infection [None]
  - Creatinine renal clearance decreased [None]
  - Syncope [None]
  - Pancytopenia [None]
  - Fall [None]
  - Carotid bruit [None]
  - Blood pressure decreased [None]
  - Sleep disorder [None]
  - Hypophagia [None]
  - Fluid intake reduced [None]
  - Troponin increased [None]
  - Blood albumin decreased [None]
  - Blood glucose increased [None]
